FAERS Safety Report 25212147 (Version 1)
Quarter: 2025Q2

REPORT INFORMATION
  Report Type: Spontaneous
  Country: US (occurrence: US)
  Receive Date: 20250418
  Receipt Date: 20250418
  Transmission Date: 20250716
  Serious: No
  Sender: BIONPHARMA INC.
  Company Number: US-Bion-014823

PATIENT
  Age: 81 Year
  Sex: Female
  Weight: 67.12 kg

DRUGS (2)
  1. LORATADINE [Suspect]
     Active Substance: LORATADINE
     Indication: Perennial allergy
     Route: 048
     Dates: start: 20250406, end: 20250407
  2. ATIVAN [Concomitant]
     Active Substance: LORAZEPAM
     Indication: Hallucination

REACTIONS (3)
  - Extra dose administered [Unknown]
  - Nausea [Recovered/Resolved]
  - Nervousness [Recovered/Resolved]

NARRATIVE: CASE EVENT DATE: 20250407
